FAERS Safety Report 5040185-X (Version None)
Quarter: 2006Q2

REPORT INFORMATION
  Report Type: 
  Country: None (occurrence: None)
  Receive Date: 20060630
  Receipt Date: 20060329
  Transmission Date: 20061013
  Serious: Yes (Hospitalization)
  Sender: FDA-Public Use
  Company Number: HQWYE572829MAR06

PATIENT
  Sex: Male
  Weight: 80 kg

DRUGS (10)
  1. ENBREL [Suspect]
     Indication: PSORIASIS
     Route: 058
     Dates: start: 20060222, end: 20060314
  2. METHYLPREDNISOLONE ACEPONATE [Concomitant]
     Indication: PSORIASIS
     Dates: start: 20060210, end: 20060314
  3. TAVEGYL [Concomitant]
     Indication: PRURITUS
     Route: 048
     Dates: start: 20060210, end: 20060314
  4. ISONIAZID [Concomitant]
     Indication: ANTIBIOTIC PROPHYLAXIS
     Route: 048
     Dates: start: 20060221, end: 20060314
  5. MONOPRIL [Concomitant]
     Dosage: ONE DOSE DAILY
     Route: 048
     Dates: start: 20060210, end: 20060227
  6. NORVASC [Concomitant]
     Route: 048
     Dates: start: 20060210, end: 20060228
  7. NORVASC [Concomitant]
     Route: 048
     Dates: start: 20060228
  8. FERROUS SULFATE TAB [Concomitant]
  9. SKIN OINTMENT NOS [Concomitant]
  10. UNSPECIFIED TOPICAL PRODUCT [Concomitant]

REACTIONS (2)
  - DERMATITIS EXFOLIATIVE [None]
  - RENAL FUNCTION TEST ABNORMAL [None]
